FAERS Safety Report 23810548 (Version 1)
Quarter: 2024Q2

REPORT INFORMATION
  Report Type: Spontaneous
  Country: US (occurrence: US)
  Receive Date: 20240502
  Receipt Date: 20240502
  Transmission Date: 20240716
  Serious: No
  Sender: FDA-Public Use
  Company Number: US-TAKEDA-2024TUS041743

PATIENT

DRUGS (1)
  1. ADDERALL XR [Suspect]
     Active Substance: AMPHETAMINE ASPARTATE\AMPHETAMINE SULFATE\DEXTROAMPHETAMINE SACCHARATE\DEXTROAMPHETAMINE SULFATE
     Indication: Product used for unknown indication
     Dosage: UNK
     Route: 065

REACTIONS (9)
  - Anhedonia [Unknown]
  - Product substitution issue [Unknown]
  - Weight increased [Unknown]
  - Product packaging quantity issue [Unknown]
  - Disturbance in attention [Unknown]
  - Crying [Unknown]
  - Feeling abnormal [Unknown]
  - Depression [Unknown]
  - Fatigue [Unknown]
